FAERS Safety Report 7503215-9 (Version None)
Quarter: 2011Q2

REPORT INFORMATION
  Report Type: 
  Country: None (occurrence: None)
  Receive Date: 20110518
  Receipt Date: 20110221
  Transmission Date: 20111010
  Serious: Yes (Other)
  Sender: FDA-Public Use
  Company Number: AE11-0014

PATIENT
  Age: 25 Year
  Sex: Female
  Weight: 63.5036 kg

DRUGS (1)
  1. CARVEDILOL PHOSPHATE [Suspect]
     Indication: DRUG LEVEL
     Dosage: 40 MG/DAY, ORAL
     Route: 048
     Dates: start: 20110201

REACTIONS (3)
  - PREGNANCY TEST POSITIVE [None]
  - DRUG EXPOSURE DURING PREGNANCY [None]
  - ABORTION SPONTANEOUS [None]
